FAERS Safety Report 6927976-2 (Version None)
Quarter: 2010Q3

REPORT INFORMATION
  Report Type: 
  Country: None (occurrence: None)
  Receive Date: 20100816
  Receipt Date: 20100816
  Transmission Date: 20110219
  Serious: No
  Sender: FDA-Public Use
  Company Number: None

PATIENT
  Age: 61 Year
  Sex: Female
  Weight: 72.5755 kg

DRUGS (1)
  1. QUININE SULFATE [Suspect]
     Indication: MUSCLE SPASMS
     Dosage: L0R 2 AS NEEDED  (ONE TIME)
     Dates: start: 20100815, end: 20100815

REACTIONS (2)
  - HEART RATE INCREASED [None]
  - TREMOR [None]
